FAERS Safety Report 11304785 (Version 1)
Quarter: 2015Q3

REPORT INFORMATION
  Report Type: Spontaneous
  Country: US (occurrence: US)
  Receive Date: 20150723
  Receipt Date: 20150723
  Transmission Date: 20151125
  Serious: No
  Sender: FDA-Public Use
  Company Number: US-JNJFOC-20150603232

PATIENT
  Age: 79 Year
  Sex: Female
  Weight: 65.32 kg

DRUGS (3)
  1. ZYRTEC 10MG IR TABLET [Suspect]
     Active Substance: CETIRIZINE HYDROCHLORIDE
     Route: 048
  2. ANTIBIOTICS (NOT SPECIFIED) [Concomitant]
     Active Substance: UNSPECIFIED INGREDIENT
     Indication: ARTHROPOD BITE
     Route: 065
  3. ZYRTEC 10MG IR TABLET [Suspect]
     Active Substance: CETIRIZINE HYDROCHLORIDE
     Indication: ARTHROPOD BITE
     Dosage: 4 TABLETS EVERY 12 HOURS
     Route: 048

REACTIONS (4)
  - Abdominal discomfort [Recovered/Resolved]
  - Product use issue [Unknown]
  - Overdose [Unknown]
  - Nausea [Recovered/Resolved]
